FAERS Safety Report 18357593 (Version 4)
Quarter: 2020Q4

REPORT INFORMATION
  Report Type: Report from Study
  Country: US (occurrence: US)
  Receive Date: 20201007
  Receipt Date: 20201224
  Transmission Date: 20210114
  Serious: No
  Sender: FDA-Public Use
  Company Number: NVSC2020US270552

PATIENT
  Age: 53 Year
  Sex: Female

DRUGS (3)
  1. COSENTYX [Suspect]
     Active Substance: SECUKINUMAB
     Indication: PSORIASIS
  2. COSENTYX [Suspect]
     Active Substance: SECUKINUMAB
     Indication: PSORIASIS
  3. COSENTYX [Suspect]
     Active Substance: SECUKINUMAB
     Indication: PSORIASIS
     Dosage: 300 MG, QW, (BENEATH THE SKIN, USUALLY VIA INJECTION)
     Route: 058
     Dates: start: 202009

REACTIONS (10)
  - Pruritus [Not Recovered/Not Resolved]
  - Hyperhidrosis [Unknown]
  - Hiccups [Unknown]
  - Feeling abnormal [Unknown]
  - Malaise [Unknown]
  - Product dose omission issue [Unknown]
  - Feeling hot [Unknown]
  - Inappropriate schedule of product administration [Unknown]
  - Diarrhoea [Unknown]
  - Nausea [Unknown]

NARRATIVE: CASE EVENT DATE: 202009
